FAERS Safety Report 8531762 (Version 5)
Quarter: 2012Q4

REPORT INFORMATION
  Report Type: 
  Country: US (occurrence: US)
  Receive Date: 20120426
  Receipt Date: 20120924
  Transmission Date: 20130627
  Serious: Yes (Other)
  Sender: FDA-Public Use
  Company Number: US-AMGEN-USASP2012025446

PATIENT
  Age: 0 Year
  Sex: Male
  Weight: 4.27 kg

DRUGS (3)
  1. ENBREL [Suspect]
     Indication: PRODUCT USED FOR UNKNOWN INDICATION
     Dosage: 50 mg, qwk
     Route: 064
     Dates: start: 201201
  2. ENBREL [Suspect]
     Dosage: 50 mg, qwk
     Route: 064
     Dates: start: 200811, end: 201012
  3. PRENATAL VITAMINS                  /02014401/ [Concomitant]
     Dosage: UNK
     Route: 064
     Dates: start: 2004

REACTIONS (3)
  - Neonatal hypoxia [Recovered/Resolved]
  - Neonatal aspiration [Recovered/Resolved]
  - Postmature baby [Recovered/Resolved]
